FAERS Safety Report 19119461 (Version 1)
Quarter: 2021Q2

REPORT INFORMATION
  Report Type: Report from Study
  Country: None (occurrence: CA)
  Receive Date: 20210411
  Receipt Date: 20210411
  Transmission Date: 20210717
  Serious: Yes (Other)
  Sender: FDA-Public Use
  Company Number: CA-ABBVIE-21K-028-3849866-00

PATIENT
  Age: 46 Year
  Sex: Male

DRUGS (1)
  1. HUMIRA [Suspect]
     Active Substance: ADALIMUMAB
     Indication: CROHN^S DISEASE
     Route: 058
     Dates: start: 20190424

REACTIONS (6)
  - Ulcer [Not Recovered/Not Resolved]
  - Unevaluable event [Recovered/Resolved]
  - Stenosis [Not Recovered/Not Resolved]
  - Colitis [Not Recovered/Not Resolved]
  - Obstruction [Not Recovered/Not Resolved]
  - Gastroenteritis viral [Not Recovered/Not Resolved]

NARRATIVE: CASE EVENT DATE: 202103
